FAERS Safety Report 8292863-7 (Version None)
Quarter: 2012Q2

REPORT INFORMATION
  Report Type: 
  Country: None (occurrence: None)
  Receive Date: 20120417
  Receipt Date: 20120215
  Transmission Date: 20120825
  Serious: No
  Sender: FDA-Public Use
  Company Number: US-ASTRAZENECA-2012SE10351

PATIENT
  Age: 69 Year
  Sex: Female
  Weight: 61.2 kg

DRUGS (4)
  1. XANAX [Concomitant]
     Route: 048
  2. NEXIUM [Suspect]
     Indication: GASTROOESOPHAGEAL REFLUX DISEASE
     Route: 048
  3. ZOCOR [Concomitant]
     Route: 048
  4. METFORMIN HCL [Concomitant]
     Indication: DIABETES MELLITUS
     Route: 048

REACTIONS (2)
  - OFF LABEL USE [None]
  - OSTEOPOROSIS [None]
